FAERS Safety Report 12631374 (Version 2)
Quarter: 2016Q3

REPORT INFORMATION
  Report Type: Spontaneous
  Country: US (occurrence: US)
  Receive Date: 20160808
  Receipt Date: 20160808
  Transmission Date: 20161109
  Serious: No
  Sender: FDA-Public Use
  Company Number: US-BEH-2015053604

PATIENT
  Sex: Female

DRUGS (1)
  1. HIZENTRA [Suspect]
     Active Substance: HUMAN IMMUNOGLOBULIN G
     Indication: PRODUCT USED FOR UNKNOWN INDICATION

REACTIONS (8)
  - Methylenetetrahydrofolate reductase gene mutation [Unknown]
  - Ear infection [Unknown]
  - Blood folate decreased [Unknown]
  - Vitamin B1 decreased [Unknown]
  - Candida infection [Unknown]
  - Blood testosterone increased [Unknown]
  - Ear pain [Unknown]
  - Adrenal disorder [Unknown]
